FAERS Safety Report 5836198-8 (Version None)
Quarter: 2008Q3

REPORT INFORMATION
  Report Type: 
  Country: None (occurrence: None)
  Receive Date: 20080806
  Receipt Date: 20080211
  Transmission Date: 20090109
  Serious: Yes (Other)
  Sender: FDA-Public Use
  Company Number: US-ELI_LILLY_AND_COMPANY-US200801001752

PATIENT

DRUGS (2)
  1. HUMATROPE [Suspect]
     Indication: TURNER'S SYNDROME
     Dosage: UNK, UNKNOWN
     Dates: start: 20050401, end: 20070701
  2. HUMATROPE [Suspect]
     Dosage: UNK, UNKNOWN
     Dates: start: 20071201

REACTIONS (1)
  - HEPATIC ADENOMA [None]
